FAERS Safety Report 10179194 (Version 1)
Quarter: 2014Q2

REPORT INFORMATION
  Report Type: Spontaneous
  Country: US (occurrence: None)
  Receive Date: 20140514
  Receipt Date: 20140514
  Transmission Date: 20141212
  Serious: Yes (Other)
  Sender: FDA-Public Use
  Company Number: ADR-2014-00756

PATIENT
  Age: 57 Year
  Sex: Male

DRUGS (1)
  1. BACLOFEN 500MCG/ML [Suspect]
     Dosage: SEE B.5.?

REACTIONS (2)
  - Implant site erosion [None]
  - Wound [None]
